FAERS Safety Report 9245734 (Version 2)
Quarter: 2013Q2

REPORT INFORMATION
  Report Type: Spontaneous
  Country: US (occurrence: US)
  Receive Date: 20130422
  Receipt Date: 20130508
  Transmission Date: 20140414
  Serious: No
  Sender: FDA-Public Use
  Company Number: US-PFIZER INC-2013124179

PATIENT
  Age: 54 Year
  Sex: Female
  Weight: 59.86 kg

DRUGS (7)
  1. CELEBREX [Suspect]
     Indication: ARTHRALGIA
     Dosage: UNK, 1X/DAY
     Route: 048
     Dates: start: 2004, end: 2004
  2. CELEBREX [Suspect]
     Indication: PAIN
     Dosage: 200 MG, 1X/DAY
     Dates: start: 20130423
  3. KLONOPIN [Suspect]
     Indication: SLEEP DISORDER
     Dosage: UNK
  4. KLONOPIN [Suspect]
     Indication: SLEEP DISORDER
     Dosage: 1 MG, 1X/DAY
  5. MORPHINE [Concomitant]
     Indication: PAIN
     Dosage: UNK
  6. BENADRYL [Concomitant]
     Indication: SLEEP DISORDER
     Dosage: 50 MG, 1X/DAY
  7. BENADRYL [Concomitant]
     Indication: SLEEP DISORDER

REACTIONS (3)
  - Drug ineffective [Unknown]
  - Insomnia [Unknown]
  - Poor quality sleep [Recovered/Resolved]
